FAERS Safety Report 18979711 (Version 3)
Quarter: 2021Q1

REPORT INFORMATION
  Report Type: Spontaneous
  Country: KZ (occurrence: KZ)
  Receive Date: 20210308
  Receipt Date: 20210324
  Transmission Date: 20210420
  Serious: Yes (Other)
  Sender: FDA-Public Use
  Company Number: KZ-AUROBINDO-AUR-APL-2021-009821

PATIENT
  Sex: Male

DRUGS (1)
  1. EFAVIRENZ+EMTRICITABINE+TENOFOVIR [Suspect]
     Active Substance: EFAVIRENZ\EMTRICITABINE\TENOFOVIR DISOPROXIL FUMARATE
     Indication: NEURALGIA
     Dosage: UNK
     Route: 065

REACTIONS (6)
  - Neuromyopathy [Unknown]
  - Migraine [Unknown]
  - Headache [Unknown]
  - Muscle tone disorder [Unknown]
  - Product use in unapproved indication [Unknown]
  - Sleep disorder [Unknown]
